FAERS Safety Report 25610043 (Version 2)
Quarter: 2025Q3

REPORT INFORMATION
  Report Type: Spontaneous
  Country: US (occurrence: US)
  Receive Date: 20250728
  Receipt Date: 20250812
  Transmission Date: 20251020
  Serious: Yes (Hospitalization, Other)
  Sender: SANOFI AVENTIS
  Company Number: US-SA-2025SA213932

PATIENT
  Age: 62 Year
  Sex: Female

DRUGS (2)
  1. DUPIXENT [Suspect]
     Active Substance: DUPILUMAB
     Indication: Asthma
     Route: 058
     Dates: start: 20250623, end: 20250623
  2. DUPIXENT [Suspect]
     Active Substance: DUPILUMAB
     Indication: Chronic obstructive pulmonary disease
     Dosage: 300 MG, QOW
     Route: 058
     Dates: start: 202507

REACTIONS (13)
  - Myocardial infarction [Unknown]
  - Chest pain [Recovering/Resolving]
  - Blood potassium decreased [Recovering/Resolving]
  - Echocardiogram abnormal [Unknown]
  - Nausea [Recovering/Resolving]
  - Myalgia [Recovering/Resolving]
  - Dizziness [Recovering/Resolving]
  - Headache [Recovering/Resolving]
  - Serum sickness [Recovering/Resolving]
  - Arthralgia [Recovering/Resolving]
  - Abdominal discomfort [Recovered/Resolved]
  - Asthenia [Recovering/Resolving]
  - Extra dose administered [Unknown]

NARRATIVE: CASE EVENT DATE: 20250101
